FAERS Safety Report 8506118-6 (Version None)
Quarter: 2012Q3

REPORT INFORMATION
  Report Type: 
  Country: None (occurrence: None)
  Receive Date: 20120712
  Receipt Date: 20120706
  Transmission Date: 20120928
  Serious: Yes (Hospitalization)
  Sender: FDA-Public Use
  Company Number: FR-SANOFI-AVENTIS-2012SA005445

PATIENT
  Age: 57 Year
  Sex: Female

DRUGS (7)
  1. LEVOFLOXACIN [Suspect]
     Indication: SACROILIITIS
     Route: 065
     Dates: start: 20110707, end: 20110810
  2. PANTOPRAZOLE [Suspect]
     Route: 065
     Dates: start: 20110718, end: 20110817
  3. CLONAZEPAM [Suspect]
     Route: 065
     Dates: start: 20110720, end: 20110817
  4. ACUPAN [Suspect]
     Route: 065
     Dates: start: 20110722, end: 20110813
  5. RIFADIN [Suspect]
     Indication: SACROILIITIS
     Route: 065
     Dates: start: 20110707, end: 20110810
  6. LYRICA [Suspect]
     Route: 065
     Dates: start: 20110725, end: 20110817
  7. HEPARIN-FRACTION [Concomitant]
     Route: 065
     Dates: start: 20110621, end: 20110810

REACTIONS (5)
  - PYREXIA [None]
  - DRUG RASH WITH EOSINOPHILIA AND SYSTEMIC SYMPTOMS [None]
  - HEPATIC ENZYME INCREASED [None]
  - EOSINOPHILIA [None]
  - RASH MACULO-PAPULAR [None]
